FAERS Safety Report 9925730 (Version 1)
Quarter: 2014Q1

REPORT INFORMATION
  Report Type: Spontaneous
  Country: BR (occurrence: BR)
  Receive Date: 20140226
  Receipt Date: 20140226
  Transmission Date: 20141002
  Serious: Yes (Other)
  Sender: FDA-Public Use
  Company Number: BR-PFIZER INC-2014048846

PATIENT
  Sex: Female

DRUGS (1)
  1. VIAGRA [Suspect]
     Dosage: 8 TABLETS OF 50MG (400MG) AT ONCE
     Route: 048

REACTIONS (2)
  - Overdose [Unknown]
  - Suicide attempt [Unknown]
